FAERS Safety Report 13700695 (Version 1)
Quarter: 2017Q2

REPORT INFORMATION
  Report Type: Spontaneous
  Country: US (occurrence: US)
  Receive Date: 20170626
  Receipt Date: 20170626
  Transmission Date: 20170830
  Serious: Yes (Hospitalization)
  Sender: FDA-Public Use
  Company Number: None

PATIENT
  Age: 80 Year
  Sex: Male

DRUGS (1)
  1. WARFARIN [Suspect]
     Active Substance: WARFARIN
     Indication: DEEP VEIN THROMBOSIS
     Route: 048
     Dates: start: 20150307

REACTIONS (14)
  - Haematochezia [None]
  - Haematemesis [None]
  - Gastritis [None]
  - Nausea [None]
  - Tachycardia [None]
  - Gastrointestinal haemorrhage [None]
  - Vomiting [None]
  - Haemorrhoids [None]
  - Mallory-Weiss syndrome [None]
  - Epistaxis [None]
  - Melaena [None]
  - Gastroenteritis norovirus [None]
  - Diverticulum [None]
  - Gastrointestinal arteriovenous malformation [None]

NARRATIVE: CASE EVENT DATE: 20170613
